FAERS Safety Report 8451361 (Version 2)
Quarter: 2012Q4

REPORT INFORMATION
  Report Type: 
  Country: GB (occurrence: GB)
  Receive Date: 20120309
  Receipt Date: 20120910
  Transmission Date: 20130627
  Serious: Yes (Disabling, Other)
  Sender: FDA-Public Use
  Company Number: PHHY2012GB017954

PATIENT
  Age: 56 Year
  Sex: Female
  Weight: 90 kg

DRUGS (3)
  1. SIMVASTATIN [Suspect]
     Indication: CARDIOVASCULAR EVENT PROPHYLAXIS
     Dosage: 40 mg
     Route: 048
     Dates: end: 201202
  2. SIMVASTATIN [Suspect]
     Indication: HYPERTENSION
  3. BENDROFLUAZIDE [Concomitant]
     Indication: HYPERTENSION
     Dosage: 2.5 mg
     Route: 048
     Dates: start: 20080909

REACTIONS (1)
  - Ear congestion [Recovered/Resolved]
